FAERS Safety Report 6124651-1 (Version None)
Quarter: 2009Q1

REPORT INFORMATION
  Report Type: 
  Country: None (occurrence: None)
  Receive Date: 20090319
  Receipt Date: 20090312
  Transmission Date: 20090719
  Serious: Yes (Other)
  Sender: FDA-Public Use
  Company Number: B0565282A

PATIENT
  Age: 55 Year
  Sex: Female

DRUGS (1)
  1. HYCAMTIN [Suspect]
     Route: 042
     Dates: start: 20090309

REACTIONS (2)
  - INTERCEPTED MEDICATION ERROR [None]
  - PRODUCT QUALITY ISSUE [None]
